FAERS Safety Report 4745357-7 (Version None)
Quarter: 2005Q3

REPORT INFORMATION
  Report Type: 
  Country: None (occurrence: None)
  Receive Date: 20050815
  Receipt Date: 20050802
  Transmission Date: 20060218
  Serious: Yes (Hospitalization)
  Sender: FDA-Public Use
  Company Number: GXKR2005GB01401

PATIENT
  Age: 80 Year
  Sex: Female

DRUGS (10)
  1. FUROSEMIDE [Suspect]
     Dosage: 80 MG, QD,
     Dates: end: 20050704
  2. GLICLAZIDE (NGX) (GLICLAZIDE) [Suspect]
     Dosage: 80 MG, QD,
     Dates: end: 20050704
  3. DOXAZOSIN (NGX) (DOXAZOSIN) [Suspect]
     Dosage: 4 MG, QD, ORAL
     Route: 048
     Dates: end: 20050704
  4. ETODOLAC [Suspect]
     Dosage: 300 MG, BID, ORAL
     Route: 048
     Dates: end: 20050704
  5. AMITRIPTYLINE HCL [Suspect]
     Dosage: 10 MG, QHS, ORAL
     Route: 048
     Dates: end: 20050704
  6. ASPIRIN [Concomitant]
  7. FERROUS SULPHATE (FERROUS SULFATE) [Concomitant]
  8. HUMAN MIXTARD (INSULIN HUMAN, INSULIN HUMAN INJECTION, ISOPHANE) [Concomitant]
  9. BETNOVATE (BETAMETHASONE) [Concomitant]
  10. EUMOVATE (CLOBETASONE BUTYRATE) [Concomitant]

REACTIONS (1)
  - DERMATITIS EXFOLIATIVE [None]
